FAERS Safety Report 10983516 (Version 1)
Quarter: 2015Q1

REPORT INFORMATION
  Report Type: Spontaneous
  Country: US (occurrence: None)
  Receive Date: 20150227
  Receipt Date: 20150227
  Transmission Date: 20150721
  Serious: Yes (Life-Threatening)
  Sender: FDA-Public Use
  Company Number: LMI-2014-00117

PATIENT
  Age: 57 Year
  Sex: Male
  Weight: 95.71 kg

DRUGS (3)
  1. DEFINITY [Suspect]
     Active Substance: PERFLUTREN
     Indication: STRESS ECHOCARDIOGRAM
     Dosage: 2 ML X 2 (1.3 ML OF DEFINITY DILUTED IN 8.7 ML OF PRESERVATIVE FREE NORMAL SALINE), INTRAVENOUS BOLUS
     Route: 040
     Dates: start: 20140324, end: 20140324
  2. HYDROCHLOROTHIAZIDE. [Concomitant]
     Active Substance: HYDROCHLOROTHIAZIDE
  3. WELLBUTRIN XL (BUPROPION HYDROCHLORIDE) [Concomitant]

REACTIONS (1)
  - Anaphylactic reaction [None]

NARRATIVE: CASE EVENT DATE: 20140324
